FAERS Safety Report 8581151-7 (Version None)
Quarter: 2012Q3

REPORT INFORMATION
  Report Type: 
  Country: None (occurrence: None)
  Receive Date: 20120809
  Receipt Date: 20120730
  Transmission Date: 20120928
  Serious: Yes (Death, Hospitalization)
  Sender: FDA-Public Use
  Company Number: JP-COVIDIEN/TYCO HEALTHCARE/MALLINCKRODT-T201203016

PATIENT
  Sex: Female
  Weight: 35 kg

DRUGS (1)
  1. METHADONE HYDROCHLORIDE [Suspect]
     Indication: CANCER PAIN
     Dosage: 90 MG, QD
     Route: 048
     Dates: start: 20120403, end: 20120730

REACTIONS (1)
  - NEOPLASM PROGRESSION [None]
